FAERS Safety Report 22970968 (Version 2)
Quarter: 2023Q4

REPORT INFORMATION
  Report Type: Spontaneous
  Country: US (occurrence: US)
  Receive Date: 20230922
  Receipt Date: 20231026
  Transmission Date: 20240110
  Serious: Yes (Hospitalization)
  Sender: FDA-Public Use
  Company Number: US-CTI BIOPHARMA-2023US04043

PATIENT

DRUGS (17)
  1. VONJO [Suspect]
     Active Substance: PACRITINIB
     Indication: Myeloproliferative neoplasm
     Dosage: 100 MG, BID
     Route: 048
     Dates: start: 20230517
  2. ALLOPURINOL [Concomitant]
     Active Substance: ALLOPURINOL
  3. ANAGRELIDE [Concomitant]
     Active Substance: ANAGRELIDE
  4. ASPIRIN [Concomitant]
     Active Substance: ASPIRIN
  5. VITAMIN D3 [Concomitant]
     Active Substance: CHOLECALCIFEROL
  6. JADENU [Concomitant]
     Active Substance: DEFERASIROX
  7. VIMPAT [Concomitant]
     Active Substance: LACOSAMIDE
  8. LAMOTRIGINE [Concomitant]
     Active Substance: LAMOTRIGINE
  9. KEPPRA [Concomitant]
     Active Substance: LEVETIRACETAM
  10. MAGNESIUM OXIDE [Concomitant]
     Active Substance: MAGNESIUM OXIDE
  11. JAKAFI [Concomitant]
     Active Substance: RUXOLITINIB
  12. FLOMAX [Concomitant]
     Active Substance: TAMSULOSIN HYDROCHLORIDE
  13. MIRALAX [Concomitant]
     Active Substance: POLYETHYLENE GLYCOL 3350
  14. VITAMINS NOS [Concomitant]
     Active Substance: VITAMINS
  15. LEVOTHYROXINE [Concomitant]
     Active Substance: LEVOTHYROXINE
  16. TYLENOL [Concomitant]
     Active Substance: ACETAMINOPHEN
  17. BENADRYL [Concomitant]
     Active Substance: DIPHENHYDRAMINE HYDROCHLORIDE

REACTIONS (4)
  - Ulcer haemorrhage [Unknown]
  - Transfusion [Unknown]
  - Drug ineffective [Unknown]
  - Product dose omission issue [Unknown]
